FAERS Safety Report 14047172 (Version 1)
Quarter: 2017Q4

REPORT INFORMATION
  Report Type: Spontaneous
  Country: PL (occurrence: PL)
  Receive Date: 20171005
  Receipt Date: 20171005
  Transmission Date: 20180321
  Serious: Yes (Hospitalization)
  Sender: FDA-Public Use
  Company Number: PL-REGULIS-2028848

PATIENT
  Age: 45 Year
  Sex: Male

DRUGS (1)
  1. METHYLENE BLUE. [Suspect]
     Active Substance: METHYLENE BLUE
     Indication: METHAEMOGLOBINAEMIA
     Route: 042

REACTIONS (2)
  - Haemolytic anaemia [Unknown]
  - Hepatic function abnormal [Unknown]
